FAERS Safety Report 12764802 (Version 1)
Quarter: 2016Q3

REPORT INFORMATION
  Report Type: Spontaneous
  Country: IL (occurrence: IL)
  Receive Date: 20160921
  Receipt Date: 20160921
  Transmission Date: 20161109
  Serious: Yes (Other)
  Sender: FDA-Public Use
  Company Number: IL-ROCHE-1831827

PATIENT
  Sex: Female

DRUGS (2)
  1. XOLAIR [Suspect]
     Active Substance: OMALIZUMAB
     Indication: CHRONIC SPONTANEOUS URTICARIA
     Dosage: 300 MG, EVERY 4 WEEKS
     Route: 065
     Dates: start: 201511
  2. XOLAIR [Suspect]
     Active Substance: OMALIZUMAB
     Indication: ANGIOEDEMA
     Route: 065

REACTIONS (6)
  - Angioedema [Unknown]
  - Drug ineffective [Unknown]
  - Product use issue [Unknown]
  - Urticaria [Unknown]
  - Rash macular [Unknown]
  - Rash pruritic [Unknown]

NARRATIVE: CASE EVENT DATE: 201511
